FAERS Safety Report 6619255-8 (Version None)
Quarter: 2010Q1

REPORT INFORMATION
  Report Type: 
  Country: None (occurrence: None)
  Receive Date: 20100303
  Receipt Date: 20100224
  Transmission Date: 20100710
  Serious: Yes (Other)
  Sender: FDA-Public Use
  Company Number: 2010SP011647

PATIENT
  Sex: Male

DRUGS (1)
  1. TEMODAL [Suspect]
     Indication: DRUG USE FOR UNKNOWN INDICATION

REACTIONS (5)
  - CONSTIPATION [None]
  - HYPERPLASIA [None]
  - POLYURIA [None]
  - RAYNAUD'S PHENOMENON [None]
  - SKIN LESION [None]
